FAERS Safety Report 18377245 (Version 3)
Quarter: 2020Q4

REPORT INFORMATION
  Report Type: Spontaneous
  Country: JP (occurrence: JP)
  Receive Date: 20201013
  Receipt Date: 20201105
  Transmission Date: 20210114
  Serious: Yes (Death)
  Sender: FDA-Public Use
  Company Number: JP-JNJFOC-20201010851

PATIENT
  Age: 24 Year
  Sex: Male

DRUGS (9)
  1. RISPERIDONE. [Concomitant]
     Active Substance: RISPERIDONE
     Route: 048
     Dates: start: 20200731, end: 20200811
  2. XEPLION [Suspect]
     Active Substance: PALIPERIDONE PALMITATE
     Dosage: PALIPERIDONE PALMITATE:25MG
     Route: 030
     Dates: start: 20200909, end: 20200916
  3. INVEGA [Suspect]
     Active Substance: PALIPERIDONE
     Route: 048
     Dates: start: 20200909, end: 20200916
  4. XEPLION [Suspect]
     Active Substance: PALIPERIDONE PALMITATE
  5. XEPLION [Suspect]
     Active Substance: PALIPERIDONE PALMITATE
     Indication: SCHIZOPHRENIA
     Dosage: PALIPERIDONE PALMITATE:25MG
     Route: 030
     Dates: start: 20200902, end: 20200902
  6. RISPERIDONE. [Concomitant]
     Active Substance: RISPERIDONE
     Indication: SCHIZOPHRENIA
     Route: 048
     Dates: start: 20200715, end: 20200730
  7. INVEGA [Suspect]
     Active Substance: PALIPERIDONE
     Indication: SCHIZOPHRENIA
     Route: 048
     Dates: start: 20200805, end: 20200811
  8. INVEGA [Suspect]
     Active Substance: PALIPERIDONE
     Route: 048
     Dates: start: 20200812, end: 20200908
  9. RISPERIDONE. [Concomitant]
     Active Substance: RISPERIDONE
     Route: 048
     Dates: start: 20200812, end: 20200916

REACTIONS (1)
  - Completed suicide [Fatal]

NARRATIVE: CASE EVENT DATE: 20200916
